FAERS Safety Report 13889205 (Version 4)
Quarter: 2018Q1

REPORT INFORMATION
  Report Type: Spontaneous
  Country: TW (occurrence: TW)
  Receive Date: 20170821
  Receipt Date: 20180327
  Transmission Date: 20180508
  Serious: Yes (Hospitalization, Other)
  Sender: FDA-Public Use
  Company Number: TW-MYLANLABS-2017M1051629

PATIENT
  Age: 33 Year
  Sex: Male

DRUGS (4)
  1. ARIPIPRAZOLE. [Interacting]
     Active Substance: ARIPIPRAZOLE
     Indication: SCHIZOPHRENIA
     Dosage: 5 MG, QD
  2. ARIPIPRAZOLE. [Interacting]
     Active Substance: ARIPIPRAZOLE
     Dosage: 5 MG, QD
  3. CLOZAPINE. [Suspect]
     Active Substance: CLOZAPINE
     Indication: SCHIZOPHRENIA
     Dosage: UNK
  4. CLOZAPINE. [Suspect]
     Active Substance: CLOZAPINE
     Dosage: 400 MG, QD

REACTIONS (6)
  - Orthostatic hypotension [Recovered/Resolved]
  - Heart rate increased [Unknown]
  - Fall [Unknown]
  - Hospitalisation [Unknown]
  - Labelled drug-drug interaction medication error [Recovered/Resolved]
  - Schizophrenia [Recovered/Resolved]
